FAERS Safety Report 12923433 (Version 1)
Quarter: 2016Q4

REPORT INFORMATION
  Report Type: Other
  Country: CA (occurrence: CA)
  Receive Date: 20161109
  Receipt Date: 20161109
  Transmission Date: 20170207
  Serious: Yes (Life-Threatening, Hospitalization, Other)
  Sender: FDA-Public Use
  Company Number: CA-APOTEX-2016AP013939

PATIENT
  Age: 81 Year
  Sex: Female

DRUGS (5)
  1. LIDOCAINE. [Suspect]
     Active Substance: LIDOCAINE
     Indication: NEUROMUSCULAR BLOCKADE
     Dosage: 100 MG, UNK
     Route: 061
  2. LIDOCAINE HYDROCHLORIDE MONOHYDRATE [Suspect]
     Active Substance: LIDOCAINE HYDROCHLORIDE
     Indication: NEUROMUSCULAR BLOCKADE
  3. GLYCOPYRRONIUM BROMIDE [Suspect]
     Active Substance: GLYCOPYRRONIUM
     Indication: ENDOTRACHEAL INTUBATION
     Dosage: 0.2 MG, UNK
     Route: 042
  4. LIDOCAINE HYDROCHLORIDE MONOHYDRATE [Suspect]
     Active Substance: LIDOCAINE HYDROCHLORIDE
     Indication: OFF LABEL USE
     Dosage: 200 MG, UNK
     Route: 065
  5. APO-MIDAZOLAM INJECTABLE 1 MG/ML [Suspect]
     Active Substance: MIDAZOLAM HYDROCHLORIDE
     Indication: ENDOTRACHEAL INTUBATION
     Dosage: 1 MG, UNK
     Route: 042

REACTIONS (5)
  - Hypotension [Unknown]
  - Pulse absent [Unknown]
  - Tachycardia [Unknown]
  - Bradycardia [Unknown]
  - Upper airway obstruction [Unknown]
